FAERS Safety Report 5729829-4 (Version None)
Quarter: 2008Q2

REPORT INFORMATION
  Report Type: 
  Country: None (occurrence: None)
  Receive Date: 20080501
  Receipt Date: 20080421
  Transmission Date: 20081010
  Serious: Yes (Death, Life-Threatening)
  Sender: FDA-Public Use
  Company Number: 000681

PATIENT
  Age: 51 Year
  Sex: Female

DRUGS (7)
  1. BUSULFEX [Suspect]
     Indication: DRUG USE FOR UNKNOWN INDICATION
     Dosage: INTRAVENOUS
     Route: 042
     Dates: start: 20070324, end: 20070325
  2. FLUDARABINE PHOSPHATE [Concomitant]
  3. VALPROATE SODIUM [Concomitant]
  4. NEUPOGEN [Concomitant]
  5. METHOTREXATE [Concomitant]
  6. CYCLOSPORINE [Concomitant]
  7. WARFARINPOTASSIUM (WARFARIN POTASSIUM) [Concomitant]

REACTIONS (10)
  - ACUTE GRAFT VERSUS HOST DISEASE [None]
  - BONE MARROW TRANSPLANT REJECTION [None]
  - DISEASE RECURRENCE [None]
  - HAEMORRHAGE [None]
  - HERPES VIRUS INFECTION [None]
  - LIVER DISORDER [None]
  - MYELODYSPLASTIC SYNDROME [None]
  - PNEUMONIA [None]
  - RESPIRATORY DISORDER [None]
  - STOMATITIS [None]
